FAERS Safety Report 13540911 (Version 5)
Quarter: 2018Q4

REPORT INFORMATION
  Report Type: Spontaneous
  Country: US (occurrence: US)
  Receive Date: 20170512
  Receipt Date: 20181106
  Transmission Date: 20190204
  Serious: Yes (Other)
  Sender: FDA-Public Use
  Company Number: US-JNJFOC-20170510841

PATIENT
  Age: 67 Year
  Sex: Female

DRUGS (3)
  1. TOPAMAX [Suspect]
     Active Substance: TOPIRAMATE
     Indication: PRODUCT USED FOR UNKNOWN INDICATION
     Route: 048
  2. TOPAMAX [Suspect]
     Active Substance: TOPIRAMATE
     Indication: PRODUCT USED FOR UNKNOWN INDICATION
     Route: 048
  3. TOPAMAX [Suspect]
     Active Substance: TOPIRAMATE
     Indication: PRODUCT USED FOR UNKNOWN INDICATION
     Route: 048
     Dates: start: 2008

REACTIONS (8)
  - Spinal operation [Not Recovered/Not Resolved]
  - Tremor [Unknown]
  - Loss of consciousness [Unknown]
  - Migraine [Unknown]
  - Pain [Unknown]
  - Asthenia [Unknown]
  - Fatigue [Unknown]
  - Seizure [Unknown]

NARRATIVE: CASE EVENT DATE: 201705
